FAERS Safety Report 7948872-8 (Version None)
Quarter: 2011Q4

REPORT INFORMATION
  Report Type: 
  Country: None (occurrence: None)
  Receive Date: 20111130
  Receipt Date: 20111128
  Transmission Date: 20120403
  Serious: Yes (Other)
  Sender: FDA-Public Use
  Company Number: ZA-PFIZER INC-2011290313

PATIENT
  Age: 40 Year
  Sex: Male

DRUGS (4)
  1. VARENICLINE TARTRATE [Suspect]
     Indication: SMOKING CESSATION THERAPY
     Dosage: 1 MG, 2X/DAY
     Route: 048
     Dates: start: 20110901
  2. VALPROATE SODIUM [Concomitant]
     Dosage: 1200 MG, 1X/DAY
     Route: 048
  3. VENLAFAXINE [Concomitant]
     Dosage: 225 MG, 1X/DAY
     Route: 048
  4. CLONAZEPAM [Concomitant]
     Dosage: 2 MG, 3X/DAY(TDS)
     Route: 048

REACTIONS (5)
  - ABDOMINAL PAIN UPPER [None]
  - AGGRESSION [None]
  - MUSCLE SPASMS [None]
  - PSYCHOTIC BEHAVIOUR [None]
  - MANIA [None]
